FAERS Safety Report 23532845 (Version 5)
Quarter: 2024Q4

REPORT INFORMATION
  Report Type: Report from Study
  Country: CN (occurrence: CN)
  Receive Date: 20240216
  Receipt Date: 20241111
  Transmission Date: 20250114
  Serious: Yes (Hospitalization)
  Sender: JOHNSON AND JOHNSON
  Company Number: US-JNJFOC-20240112809

PATIENT
  Age: 70 Year
  Sex: Male
  Weight: 75 kg

DRUGS (10)
  1. DARATUMUMAB [Suspect]
     Active Substance: DARATUMUMAB
     Indication: Plasma cell myeloma
     Route: 058
     Dates: start: 20230301, end: 20230804
  2. DARATUMUMAB [Suspect]
     Active Substance: DARATUMUMAB
     Route: 058
     Dates: start: 20230804
  3. DARATUMUMAB [Suspect]
     Active Substance: DARATUMUMAB
     Route: 058
     Dates: start: 20230428, end: 20230901
  4. DARATUMUMAB [Suspect]
     Active Substance: DARATUMUMAB
     Route: 058
     Dates: start: 20230901, end: 20240901
  5. ELRANATAMAB [Suspect]
     Active Substance: ELRANATAMAB
     Indication: Plasma cell myeloma
     Dosage: C1D1
     Route: 058
     Dates: start: 20230214, end: 20230214
  6. ELRANATAMAB [Suspect]
     Active Substance: ELRANATAMAB
     Dosage: C1D4
     Route: 058
     Dates: start: 20230217, end: 20230217
  7. ELRANATAMAB [Suspect]
     Active Substance: ELRANATAMAB
     Dosage: C1D8
     Route: 058
     Dates: start: 20230222, end: 20230222
  8. ELRANATAMAB [Suspect]
     Active Substance: ELRANATAMAB
     Dosage: C1D15
     Route: 058
     Dates: start: 20230301, end: 20230804
  9. ELRANATAMAB [Suspect]
     Active Substance: ELRANATAMAB
     Dosage: C7D1
     Route: 058
     Dates: start: 20230804, end: 20230901
  10. ELRANATAMAB [Suspect]
     Active Substance: ELRANATAMAB
     Route: 058
     Dates: start: 20230222, end: 20230804

REACTIONS (2)
  - Cytomegalovirus infection reactivation [Recovered/Resolved]
  - Cytomegalovirus chorioretinitis [Recovered/Resolved]

NARRATIVE: CASE EVENT DATE: 20230912
